FAERS Safety Report 21127504 (Version 1)
Quarter: 2022Q3

REPORT INFORMATION
  Report Type: Spontaneous
  Country: US (occurrence: None)
  Receive Date: 20220725
  Receipt Date: 20220725
  Transmission Date: 20221027
  Serious: No
  Sender: FDA-Public Use
  Company Number: None

PATIENT
  Sex: Female

DRUGS (5)
  1. PROLIA [Suspect]
     Active Substance: DENOSUMAB
     Route: 058
     Dates: start: 20190725
  2. ASPIRIN [Concomitant]
     Active Substance: ASPIRIN
  3. CITRACAL TAB MAX PLUS [Concomitant]
  4. EYE DROPS [Concomitant]
  5. ROSUVASTATIN [Concomitant]
     Active Substance: ROSUVASTATIN

REACTIONS (7)
  - Macular degeneration [None]
  - Angiopathy [None]
  - Viral infection [None]
  - Transient ischaemic attack [None]
  - Dizziness [None]
  - Dizziness [None]
  - Drug hypersensitivity [None]
